FAERS Safety Report 8047834-2 (Version None)
Quarter: 2012Q1

REPORT INFORMATION
  Report Type: 
  Country: None (occurrence: None)
  Receive Date: 20120116
  Receipt Date: 20120110
  Transmission Date: 20120608
  Serious: Yes (Hospitalization)
  Sender: FDA-Public Use
  Company Number: PHHY2011ZA107073

PATIENT
  Age: 81 Year
  Sex: Female

DRUGS (2)
  1. ZOLEDRONOC ACID [Suspect]
     Dosage: 5 MG, YEARLY
     Route: 042
  2. ZOLEDRONOC ACID [Suspect]
     Dosage: 5 MG, YEARLY
     Route: 042

REACTIONS (3)
  - ASTHENIA [None]
  - MUSCLE RUPTURE [None]
  - CARPAL TUNNEL SYNDROME [None]
